FAERS Safety Report 8292256-2 (Version None)
Quarter: 2012Q2

REPORT INFORMATION
  Report Type: 
  Country: None (occurrence: None)
  Receive Date: 20120417
  Receipt Date: 20120404
  Transmission Date: 20120825
  Serious: Yes (Disabling)
  Sender: FDA-Public Use
  Company Number: GB-MYLANLABS-2012S1007310

PATIENT
  Age: 89 Year
  Sex: Male

DRUGS (8)
  1. ALENDRONIC ACID [Suspect]
     Indication: OSTEOPOROSIS
     Route: 048
     Dates: end: 20120112
  2. ADCAL /00108001/ [Concomitant]
     Indication: OSTEOPOROSIS
  3. OMEPRAZOLE [Concomitant]
     Indication: PRODUCT USED FOR UNKNOWN INDICATION
     Route: 048
  4. CITALOPRAM [Concomitant]
     Indication: PRODUCT USED FOR UNKNOWN INDICATION
     Route: 048
  5. ACETAMINOPHEN [Concomitant]
     Indication: PRODUCT USED FOR UNKNOWN INDICATION
     Route: 048
  6. HYDROXYUREA [Concomitant]
     Indication: THROMBOCYTOPENIA
     Route: 048
  7. CYANOCOBALAMIN [Concomitant]
     Indication: PRODUCT USED FOR UNKNOWN INDICATION
     Route: 048
  8. SYMBICORT [Concomitant]
     Indication: ASTHMA
     Route: 055

REACTIONS (4)
  - LIP EXFOLIATION [None]
  - LIP ULCERATION [None]
  - MOUTH ULCERATION [None]
  - ORAL MUCOSAL ERYTHEMA [None]
